FAERS Safety Report 8809622 (Version 1)
Quarter: 2012Q4

REPORT INFORMATION
  Report Type: 
  Country: US (occurrence: US)
  Receive Date: 20120926
  Receipt Date: 20120926
  Transmission Date: 20130627
  Serious: Yes (Other)
  Sender: FDA-Public Use
  Company Number: US-ROCHE-1129191

PATIENT
  Sex: Female

DRUGS (14)
  1. AVASTIN [Suspect]
     Indication: BRAIN NEOPLASM MALIGNANT
     Route: 065
  2. AVASTIN [Suspect]
     Route: 065
     Dates: start: 200611
  3. AVASTIN [Suspect]
     Route: 065
     Dates: start: 20061122
  4. AVASTIN [Suspect]
     Route: 065
     Dates: start: 20061206
  5. AVASTIN [Suspect]
     Route: 065
     Dates: start: 20061220
  6. AVASTIN [Suspect]
     Route: 065
     Dates: start: 20070103
  7. AVASTIN [Suspect]
     Route: 065
     Dates: start: 20070117
  8. AVASTIN [Suspect]
     Route: 065
     Dates: start: 20070131
  9. AVASTIN [Suspect]
     Route: 065
     Dates: start: 20070214
  10. AVASTIN [Suspect]
     Route: 065
     Dates: start: 20070228
  11. AVASTIN [Suspect]
     Route: 065
     Dates: start: 20070405
  12. AVASTIN [Suspect]
     Route: 065
     Dates: start: 20070419
  13. TEMODAR [Concomitant]
  14. IRINOTECAN [Concomitant]

REACTIONS (3)
  - Convulsion [Unknown]
  - Disease progression [Unknown]
  - Pain [Unknown]
